FAERS Safety Report 9423126 (Version 2)
Quarter: 2014Q3

REPORT INFORMATION
  Report Type: Spontaneous
  Country: US (occurrence: US)
  Receive Date: 20130726
  Receipt Date: 20140818
  Transmission Date: 20150326
  Serious: Yes (Hospitalization, Other)
  Sender: FDA-Public Use
  Company Number: US-009507513-1307USA014892

PATIENT
  Sex: Female

DRUGS (1)
  1. NUVARING [Suspect]
     Active Substance: ETHINYL ESTRADIOL\ETONOGESTREL
     Indication: CONTRACEPTION
     Dosage: UNK
     Route: 067
     Dates: start: 201103

REACTIONS (14)
  - Gallbladder disorder [Unknown]
  - Prolactinoma [Unknown]
  - Abdominal pain lower [Unknown]
  - Secondary adrenocortical insufficiency [Unknown]
  - Pulmonary embolism [Not Recovered/Not Resolved]
  - Impaired gastric emptying [Unknown]
  - Mammoplasty [Unknown]
  - Tonsillectomy [Unknown]
  - Menorrhagia [Unknown]
  - Hypothyroidism [Unknown]
  - Pituitary tumour removal [Unknown]
  - Hypertension [Unknown]
  - Dysmenorrhoea [Unknown]
  - Endocrine disorder [Unknown]

NARRATIVE: CASE EVENT DATE: 2011
